FAERS Safety Report 10561807 (Version 1)
Quarter: 2014Q4

REPORT INFORMATION
  Report Type: Spontaneous
  Country: IN (occurrence: IN)
  Receive Date: 20141103
  Receipt Date: 20141103
  Transmission Date: 20150529
  Serious: Yes (Hospitalization)
  Sender: FDA-Public Use
  Company Number: PHHY2014IN140889

PATIENT
  Age: 17 Year
  Sex: Female

DRUGS (1)
  1. RAMIPRIL. [Suspect]
     Active Substance: RAMIPRIL
     Indication: PRODUCT USED FOR UNKNOWN INDICATION
     Dosage: 20 DF, UNK
     Route: 065

REACTIONS (21)
  - Acute kidney injury [Recovering/Resolving]
  - Hypothermia [Recovering/Resolving]
  - International normalised ratio increased [Unknown]
  - Cardiogenic shock [Recovering/Resolving]
  - Respiratory rate increased [Recovering/Resolving]
  - Brain natriuretic peptide increased [Recovering/Resolving]
  - Peripheral coldness [Recovering/Resolving]
  - Lactic acidosis [Recovering/Resolving]
  - Acidosis [Recovering/Resolving]
  - Pulse absent [Recovering/Resolving]
  - Hyperkalaemia [Recovering/Resolving]
  - Blood alkaline phosphatase increased [Unknown]
  - Circulatory collapse [Recovering/Resolving]
  - Left ventricular dysfunction [Recovering/Resolving]
  - Heart rate increased [Recovering/Resolving]
  - Depressed level of consciousness [Recovering/Resolving]
  - Toxicity to various agents [Unknown]
  - Blood pressure immeasurable [Recovering/Resolving]
  - Metabolic acidosis [Recovering/Resolving]
  - Hepatic function abnormal [Recovering/Resolving]
  - Suicide attempt [Unknown]
